FAERS Safety Report 4977690-8 (Version None)
Quarter: 2006Q2

REPORT INFORMATION
  Report Type: 
  Country: None (occurrence: None)
  Receive Date: 20060420
  Receipt Date: 20051104
  Transmission Date: 20061013
  Serious: No
  Sender: FDA-Public Use
  Company Number: US-GLAXOSMITHKLINE-A0580908A

PATIENT
  Sex: Female

DRUGS (4)
  1. ESKALITH CR [Suspect]
     Dosage: 450MG PER DAY
     Route: 048
     Dates: start: 19890101, end: 20051101
  2. NARDIL [Concomitant]
  3. LAMICTAL [Concomitant]
  4. RESTORIL [Concomitant]

REACTIONS (3)
  - DIZZINESS [None]
  - ILL-DEFINED DISORDER [None]
  - SENSORY DISTURBANCE [None]
